FAERS Safety Report 16460449 (Version 1)
Quarter: 2019Q2

REPORT INFORMATION
  Report Type: Spontaneous
  Country: DE (occurrence: DE)
  Receive Date: 20190620
  Receipt Date: 20190620
  Transmission Date: 20190711
  Serious: Yes (Other)
  Sender: FDA-Public Use
  Company Number: DE-BAUSCH-BL-2019-017471

PATIENT
  Sex: Female

DRUGS (2)
  1. GILENYA [Suspect]
     Active Substance: FINGOLIMOD HYDROCHLORIDE
     Indication: PRODUCT USED FOR UNKNOWN INDICATION
     Route: 065
  2. MYDRUM AUGENTROPFEN [Suspect]
     Active Substance: TROPICAMIDE
     Indication: MIOSIS
     Dosage: UNKNOWN
     Route: 065
     Dates: start: 201905

REACTIONS (2)
  - Bradycardia [Unknown]
  - Blood pressure increased [Unknown]
